FAERS Safety Report 24257424 (Version 1)
Quarter: 2024Q3

REPORT INFORMATION
  Report Type: Spontaneous
  Country: DE (occurrence: DE)
  Receive Date: 20240828
  Receipt Date: 20240828
  Transmission Date: 20241016
  Serious: Yes (Other)
  Sender: VKT PHARMA PRIVATE LIMITED
  Company Number: DE-VKT-000583

PATIENT
  Age: 67 Year
  Sex: Male

DRUGS (8)
  1. FENTANYL [Suspect]
     Active Substance: FENTANYL\FENTANYL CITRATE
     Indication: Pain
     Route: 065
  2. TRAMADOL [Suspect]
     Active Substance: TRAMADOL\TRAMADOL HYDROCHLORIDE
     Indication: Pain
     Route: 065
  3. IBUPROFEN [Suspect]
     Active Substance: IBUPROFEN
     Indication: Pain
     Route: 065
  4. HYDROCORTISONE [Concomitant]
     Active Substance: HYDROCORTISONE\HYDROCORTISONE ACETATE
     Indication: Product used for unknown indication
     Route: 065
  5. LEVOTHYROXINE [Concomitant]
     Active Substance: LEVOTHYROXINE\LEVOTHYROXINE SODIUM
     Indication: Product used for unknown indication
     Route: 065
  6. MINIRIN [Concomitant]
     Active Substance: DESMOPRESSIN ACETATE
     Indication: Product used for unknown indication
     Route: 045
  7. TESTOSTERONE [Concomitant]
     Active Substance: TESTOSTERONE
     Indication: Product used for unknown indication
     Route: 062
  8. LEVETIRACETAM [Suspect]
     Active Substance: LEVETIRACETAM
     Indication: Seizure prophylaxis
     Route: 065

REACTIONS (2)
  - Simple partial seizures [Recovered/Resolved]
  - Hyponatraemia [Recovered/Resolved]
